FAERS Safety Report 23923287 (Version 2)
Quarter: 2024Q3

REPORT INFORMATION
  Report Type: Report from Study
  Country: DE (occurrence: DE)
  Receive Date: 20240531
  Receipt Date: 20240813
  Transmission Date: 20241017
  Serious: Yes (Hospitalization)
  Sender: ROCHE
  Company Number: DE-ROCHE-3568595

PATIENT
  Age: 85 Year
  Sex: Female
  Weight: 74.5 kg

DRUGS (2)
  1. ADO-TRASTUZUMAB EMTANSINE [Suspect]
     Active Substance: ADO-TRASTUZUMAB EMTANSINE
     Indication: Breast cancer
     Dosage: DATE OF LAST APPLICATION PRIOR EVENT ON 07/MAY/2024.??LAST DOSE PRIOR EVENT 266.4
     Route: 065
     Dates: start: 20221227
  2. ADO-TRASTUZUMAB EMTANSINE [Suspect]
     Active Substance: ADO-TRASTUZUMAB EMTANSINE
     Dosage: FREQUENCY TEXT:PER CYCLE
     Route: 065
     Dates: start: 20240507

REACTIONS (6)
  - Cardiac operation [Recovered/Resolved]
  - Pyrexia [Not Recovered/Not Resolved]
  - Cardiac failure [Recovered/Resolved]
  - Ejection fraction decreased [Recovered/Resolved]
  - Pneumonia [Recovered/Resolved]
  - Hypokalaemia [Recovered/Resolved]

NARRATIVE: CASE EVENT DATE: 20240515
